FAERS Safety Report 6520166-7 (Version None)
Quarter: 2009Q4

REPORT INFORMATION
  Report Type: 
  Country: None (occurrence: None)
  Receive Date: 20091229
  Receipt Date: 20091221
  Transmission Date: 20100525
  Serious: Yes (Other)
  Sender: FDA-Public Use
  Company Number: US-BAYER-200943508NA

PATIENT
  Sex: Female

DRUGS (4)
  1. AVELOX [Suspect]
     Indication: INFECTION
     Dates: start: 20070201
  2. AVELOX [Suspect]
     Dates: start: 20080401
  3. CIPRO [Suspect]
     Indication: INFECTION
     Dates: start: 20070301
  4. CIPRO [Suspect]
     Dates: start: 20070401

REACTIONS (2)
  - TENDON RUPTURE [None]
  - TENDONITIS [None]
